FAERS Safety Report 8836632 (Version 1)
Quarter: 2012Q4

REPORT INFORMATION
  Report Type: Spontaneous
  Country: US (occurrence: None)
  Receive Date: 20121010
  Receipt Date: 20121010
  Transmission Date: 20130627
  Serious: Yes (Hospitalization, Other)
  Sender: FDA-Public Use
  Company Number: 2012MA002167

PATIENT
  Sex: Female
  Weight: 73.94 kg

DRUGS (13)
  1. METOCLOPRAMIDE [Suspect]
     Indication: NAUSEA
     Dates: start: 198310, end: 201012
  2. METOCLOPRAMIDE [Suspect]
     Indication: VOMITING
     Dates: start: 198310, end: 201012
  3. METOCLOPRAMIDE [Suspect]
     Indication: PEPTIC ULCER DISEASE
     Dates: start: 198310, end: 201012
  4. ANTIDEPRESSANT [Concomitant]
  5. KEPPRA [Concomitant]
  6. ATIVAN [Concomitant]
  7. METHAMPHETAMINE [Concomitant]
  8. ZOCOR [Concomitant]
  9. GLYBURIDE [Concomitant]
  10. ATENOLOL [Concomitant]
  11. NEXIUM [Concomitant]
  12. ZYPREXA [Concomitant]
  13. AGGRENOX [Concomitant]

REACTIONS (20)
  - Dystonia [None]
  - Economic problem [None]
  - Emotional disorder [None]
  - Cerebrovascular accident [None]
  - Convulsion [None]
  - Aggression [None]
  - Dyskinesia [None]
  - Tremor [None]
  - Hypoaesthesia [None]
  - Nervousness [None]
  - Depression [None]
  - Anxiety [None]
  - Drug abuse [None]
  - Alcohol abuse [None]
  - Altered state of consciousness [None]
  - Aphasia [None]
  - Stress [None]
  - Transient ischaemic attack [None]
  - Renal failure acute [None]
  - Diabetes mellitus [None]
